FAERS Safety Report 19052861 (Version 1)
Quarter: 2021Q1

REPORT INFORMATION
  Report Type: Spontaneous
  Country: US (occurrence: US)
  Receive Date: 20210324
  Receipt Date: 20210324
  Transmission Date: 20210420
  Serious: No
  Sender: FDA-Public Use
  Company Number: US-TARO-2020TAR00983

PATIENT

DRUGS (3)
  1. LAMOTRIGINE TABLETS 25 MG [Suspect]
     Active Substance: LAMOTRIGINE
     Indication: PRODUCT USED FOR UNKNOWN INDICATION
     Dosage: 25 MG, BID
     Route: 048
     Dates: start: 202004, end: 20200509
  2. BUSPIRONE [Concomitant]
     Active Substance: BUSPIRONE HYDROCHLORIDE
     Indication: PRODUCT USED FOR UNKNOWN INDICATION
     Dosage: 1/2 TABLET 2X PER DAY + AT BEDTIME
     Route: 065
  3. CLONAZEPAM. [Concomitant]
     Active Substance: CLONAZEPAM
     Indication: PRODUCT USED FOR UNKNOWN INDICATION
     Dosage: 1 MG, AS NEEDED
     Route: 065

REACTIONS (6)
  - Withdrawal syndrome [Recovered/Resolved]
  - Abdominal discomfort [Recovered/Resolved]
  - Product substitution issue [Unknown]
  - Drug ineffective [Unknown]
  - Headache [Recovered/Resolved]
  - Product solubility abnormal [Unknown]

NARRATIVE: CASE EVENT DATE: 202004
